FAERS Safety Report 5288871-0 (Version None)
Quarter: 2007Q1

REPORT INFORMATION
  Report Type: 
  Country: None (occurrence: None)
  Receive Date: 20070116
  Receipt Date: 20061129
  Transmission Date: 20070707
  Serious: Yes (Hospitalization)
  Sender: FDA-Public Use
  Company Number: US-2006-026254

PATIENT
  Age: 30 Year
  Sex: Female

DRUGS (1)
  1. YAZ [Suspect]
     Indication: ORAL CONTRACEPTION
     Dosage: 1TAB(S), 1X/DAY, ORAL
     Route: 048
     Dates: start: 20060501, end: 20060520

REACTIONS (1)
  - POSTOPERATIVE THROMBOSIS [None]
